FAERS Safety Report 16963191 (Version 2)
Quarter: 2019Q4

REPORT INFORMATION
  Report Type: Spontaneous
  Country: US (occurrence: US)
  Receive Date: 20191025
  Receipt Date: 20191025
  Transmission Date: 20200122
  Serious: Yes (Death, Other)
  Sender: FDA-Public Use
  Company Number: US-BAYER-2019-188028

PATIENT
  Age: 68 Year
  Sex: Male

DRUGS (1)
  1. STIVARGA [Suspect]
     Active Substance: REGORAFENIB
     Indication: HEPATIC CANCER
     Dosage: 80 MG
     Route: 048
     Dates: start: 20190621, end: 20191001

REACTIONS (4)
  - Amputee [None]
  - Death [Fatal]
  - General physical health deterioration [None]
  - Off label use [None]

NARRATIVE: CASE EVENT DATE: 20190621
